FAERS Safety Report 9204282 (Version 3)
Quarter: 2013Q2

REPORT INFORMATION
  Report Type: Report from Study
  Country: CA (occurrence: CA)
  Receive Date: 20130402
  Receipt Date: 20130419
  Transmission Date: 20140414
  Serious: Yes (Hospitalization)
  Sender: FDA-Public Use
  Company Number: CA-ABBOTT-13P-028-1070042-00

PATIENT
  Age: 36 Year
  Sex: Female

DRUGS (3)
  1. HUMIRA [Suspect]
     Indication: RHEUMATOID ARTHRITIS
     Route: 058
     Dates: start: 20130314
  2. HUMIRA [Suspect]
     Route: 058
     Dates: start: 20130401
  3. ANTIBIOTICS [Suspect]
     Indication: PNEUMONIA
     Dates: start: 201303, end: 201303

REACTIONS (7)
  - Malaise [Unknown]
  - Pneumonia [Recovered/Resolved]
  - Pyrexia [Not Recovered/Not Resolved]
  - Nasal congestion [Not Recovered/Not Resolved]
  - Influenza [Not Recovered/Not Resolved]
  - Headache [Unknown]
  - Pain [Unknown]
